FAERS Safety Report 5574308-0 (Version None)
Quarter: 2007Q4

REPORT INFORMATION
  Report Type: 
  Country: None (occurrence: None)
  Receive Date: 20071226
  Receipt Date: 20071226
  Transmission Date: 20080405
  Serious: No
  Sender: FDA-Public Use
  Company Number: None

PATIENT
  Sex: Female
  Weight: 58.9676 kg

DRUGS (2)
  1. SERTRALINE [Suspect]
     Indication: AFFECTIVE DISORDER
     Dosage: 150 MG QDAY PO
     Route: 048
     Dates: start: 20061018, end: 20070301
  2. SERTRALINE [Suspect]
     Indication: DEPRESSION
     Dosage: 150MG QDAY PO
     Route: 048
     Dates: start: 20071026

REACTIONS (3)
  - ANXIETY [None]
  - DEPRESSION [None]
  - PHARMACEUTICAL PRODUCT COMPLAINT [None]
